FAERS Safety Report 12894629 (Version 1)
Quarter: 2016Q4

REPORT INFORMATION
  Report Type: Report from Study
  Country: None (occurrence: US)
  Receive Date: 20161028
  Receipt Date: 20161028
  Transmission Date: 20170207
  Serious: Yes (Life-Threatening, Hospitalization)
  Sender: FDA-Public Use
  Company Number: US-ABBVIE-16P-163-1762938-00

PATIENT
  Age: 77 Year

DRUGS (61)
  1. VIEKIRA PAK [Suspect]
     Active Substance: DASABUVIR\OMBITASVIR\PARITAPREVIR\RITONAVIR
     Dosage: OMBITASVIR,123MGPARITAPREVIR75MG, ROTANOVIR50MG:2 TABPO QD DASABUVIR 250MG BID
     Route: 048
     Dates: end: 20160429
  2. LISINOPRIL AND HYDROCHLOROTHIAZIDE [Concomitant]
     Active Substance: HYDROCHLOROTHIAZIDE\LISINOPRIL
     Indication: MEDIASTINAL MASS
     Dosage: 20/25 MG
     Route: 048
     Dates: start: 20160503, end: 20160506
  3. ADVANCED HEALING FORMULA [Concomitant]
     Indication: DEAFNESS
     Route: 048
     Dates: start: 2014
  4. TYLENOL [Concomitant]
     Active Substance: ACETAMINOPHEN
     Indication: BACK PAIN
     Route: 048
     Dates: start: 2013
  5. POTASSIUM CHLORIDE. [Concomitant]
     Active Substance: POTASSIUM CHLORIDE
     Indication: SMALL CELL LUNG CANCER
  6. ACETAMINOPHEN. [Concomitant]
     Active Substance: ACETAMINOPHEN
     Indication: HYPONATRAEMIA
  7. ACETAMINOPHEN. [Concomitant]
     Active Substance: ACETAMINOPHEN
     Indication: SMALL CELL LUNG CANCER
  8. LORAZEPAM. [Concomitant]
     Active Substance: LORAZEPAM
     Indication: MEDIASTINAL MASS
     Route: 042
     Dates: start: 20160507, end: 20160507
  9. LORAZEPAM. [Concomitant]
     Active Substance: LORAZEPAM
     Indication: HYPOTENSION
  10. WELLBUTRIN [Concomitant]
     Active Substance: BUPROPION HYDROCHLORIDE
     Indication: PRODUCT USED FOR UNKNOWN INDICATION
     Route: 048
     Dates: start: 20160525
  11. VIEKIRA PAK [Suspect]
     Active Substance: DASABUVIR\OMBITASVIR\PARITAPREVIR\RITONAVIR
     Indication: HEPATITIS C
     Dosage: OMBITASVIR,123MGPARITAPREVIR75MG, ROTANOVIR50MG:2 TABPO QD DASABUVIR 250MG BID
     Route: 048
     Dates: start: 20160205
  12. GLUCOSAMINE SULFATE [Concomitant]
     Active Substance: GLUCOSAMINE SULFATE
     Indication: BACK PAIN
     Route: 048
  13. ASPIRIN. [Concomitant]
     Active Substance: ASPIRIN
     Indication: PROPHYLAXIS
     Route: 048
     Dates: start: 2009
  14. AMOXICILLIN. [Concomitant]
     Active Substance: AMOXICILLIN
     Indication: PRODUCT USED FOR UNKNOWN INDICATION
     Route: 048
     Dates: start: 20160425, end: 20160502
  15. POTASSIUM CHLORIDE. [Concomitant]
     Active Substance: POTASSIUM CHLORIDE
     Indication: HYPOTENSION
  16. NORMAL SALINE [Concomitant]
     Active Substance: SODIUM CHLORIDE
     Indication: HYPOTENSION
     Dosage: TL
     Route: 042
     Dates: start: 20160507, end: 20160507
  17. ENOXAPARIN [Concomitant]
     Active Substance: ENOXAPARIN
     Indication: HYPOTENSION
  18. SODIUM CHLORIDE. [Concomitant]
     Active Substance: SODIUM CHLORIDE
     Indication: HYPOTENSION
  19. NICOTINE NICODERM CQ [Concomitant]
     Dosage: 14MG/24HR, PATCH
     Dates: start: 20160609
  20. LISINOPRIL AND HYDROCHLOROTHIAZIDE [Concomitant]
     Active Substance: HYDROCHLOROTHIAZIDE\LISINOPRIL
     Indication: HYPERTENSION
     Dosage: 40/50 MG
     Route: 048
     Dates: start: 20111129, end: 20160512
  21. LISINOPRIL. [Concomitant]
     Active Substance: LISINOPRIL
     Indication: HYPONATRAEMIA
  22. ACETAMINOPHEN. [Concomitant]
     Active Substance: ACETAMINOPHEN
     Indication: HYPOTENSION
  23. NICOTINE TRANSDERMAL SYSTEM [Concomitant]
     Active Substance: NICOTINE
     Indication: HYPOTENSION
  24. SODIUM CHLORIDE. [Concomitant]
     Active Substance: SODIUM CHLORIDE
     Indication: HYPONATRAEMIA
  25. AMLODIPINE [Concomitant]
     Active Substance: AMLODIPINE BESYLATE
     Indication: HYPERTENSION
     Route: 048
     Dates: start: 20150914, end: 20160204
  26. LEG CRAMPS PM [Concomitant]
     Indication: MUSCLE SPASMS
     Dosage: AT BEDTIME
     Route: 048
     Dates: start: 2014, end: 20160121
  27. DEPO-MEDROL [Concomitant]
     Active Substance: METHYLPREDNISOLONE ACETATE
     Indication: BACK PAIN
     Dosage: ISTAT
     Dates: start: 20160120, end: 20160120
  28. NORMAL SALINE [Concomitant]
     Active Substance: SODIUM CHLORIDE
     Indication: SMALL CELL LUNG CANCER
  29. ACETAMINOPHEN. [Concomitant]
     Active Substance: ACETAMINOPHEN
     Indication: MEDIASTINAL MASS
     Route: 048
     Dates: start: 20160508, end: 20160508
  30. LORAZEPAM. [Concomitant]
     Active Substance: LORAZEPAM
     Indication: HYPONATRAEMIA
  31. LORAZEPAM. [Concomitant]
     Active Substance: LORAZEPAM
     Indication: SMALL CELL LUNG CANCER
  32. NICOTINE NICODERM CQ [Concomitant]
     Indication: SMOKING CESSATION THERAPY
     Dosage: 7MG/24HR, PATCH
     Dates: start: 20160516
  33. AMLODIPINE [Concomitant]
     Active Substance: AMLODIPINE BESYLATE
     Route: 048
     Dates: start: 20160508
  34. POTASSIUM CHLORIDE. [Concomitant]
     Active Substance: POTASSIUM CHLORIDE
     Indication: HYPONATRAEMIA
  35. ENOXAPARIN [Concomitant]
     Active Substance: ENOXAPARIN
     Indication: SMALL CELL LUNG CANCER
  36. NICOTINE TRANSDERMAL SYSTEM [Concomitant]
     Active Substance: NICOTINE
     Indication: HYPONATRAEMIA
  37. NICOTINE TRANSDERMAL SYSTEM [Concomitant]
     Active Substance: NICOTINE
     Indication: SMALL CELL LUNG CANCER
  38. PRAVASTATIN. [Concomitant]
     Active Substance: PRAVASTATIN
     Indication: BLOOD CHOLESTEROL
     Route: 048
     Dates: start: 20140711, end: 20160510
  39. LISINOPRIL AND HYDROCHLOROTHIAZIDE [Concomitant]
     Active Substance: HYDROCHLOROTHIAZIDE\LISINOPRIL
     Indication: HYPOTENSION
  40. LISINOPRIL AND HYDROCHLOROTHIAZIDE [Concomitant]
     Active Substance: HYDROCHLOROTHIAZIDE\LISINOPRIL
     Indication: HYPONATRAEMIA
  41. TRIAMCINOLONE ACETONIDE OINTMENT [Concomitant]
     Indication: LIMB INJURY
     Route: 061
     Dates: start: 20160312, end: 20160312
  42. NEOSPORIN [Concomitant]
     Active Substance: BACITRACIN ZINC\NEOMYCIN SULFATE\POLYMYXIN B SULFATE
     Indication: LIMB INJURY
     Dosage: AAA
     Route: 061
     Dates: start: 20160301, end: 20160321
  43. LISINOPRIL. [Concomitant]
     Active Substance: LISINOPRIL
     Indication: MEDIASTINAL MASS
     Dates: start: 20160506, end: 20160507
  44. ENOXAPARIN [Concomitant]
     Active Substance: ENOXAPARIN
     Indication: HYPONATRAEMIA
  45. NICOTINE TRANSDERMAL SYSTEM [Concomitant]
     Active Substance: NICOTINE
     Indication: MEDIASTINAL MASS
     Dosage: 21 MG/TD
     Dates: start: 20160507
  46. VIEKIRA PAK [Suspect]
     Active Substance: DASABUVIR\OMBITASVIR\PARITAPREVIR\RITONAVIR
     Dosage: OMBITASVIR,123MGPARITAPREVIR75MG, ROTANOVIR50MG:2 TABPO QD DASABUVIR 250MG BID
     Route: 048
  47. AMLODIPINE [Concomitant]
     Active Substance: AMLODIPINE BESYLATE
     Route: 048
     Dates: start: 20160205, end: 20160507
  48. VITAMIN B12 [Concomitant]
     Active Substance: CYANOCOBALAMIN
     Indication: VITAMIN SUPPLEMENTATION
     Route: 048
     Dates: start: 2014
  49. TYLENOL [Concomitant]
     Active Substance: ACETAMINOPHEN
     Indication: JOINT SWELLING
     Route: 048
     Dates: start: 201603
  50. LISINOPRIL. [Concomitant]
     Active Substance: LISINOPRIL
     Indication: HYPOTENSION
  51. LISINOPRIL. [Concomitant]
     Active Substance: LISINOPRIL
     Indication: SMALL CELL LUNG CANCER
  52. POTASSIUM CHLORIDE. [Concomitant]
     Active Substance: POTASSIUM CHLORIDE
     Indication: MEDIASTINAL MASS
     Route: 048
     Dates: start: 20160506, end: 20160506
  53. NORMAL SALINE [Concomitant]
     Active Substance: SODIUM CHLORIDE
     Indication: MEDIASTINAL MASS
     Dosage: TL
     Route: 042
     Dates: start: 20160506, end: 20160506
  54. NORMAL SALINE [Concomitant]
     Active Substance: SODIUM CHLORIDE
     Indication: HYPONATRAEMIA
  55. LISINOPRIL AND HYDROCHLOROTHIAZIDE [Concomitant]
     Active Substance: HYDROCHLOROTHIAZIDE\LISINOPRIL
     Indication: SMALL CELL LUNG CANCER
  56. ALLERGY RELIEF OTC DIPHENHYDRAMINE [Concomitant]
     Indication: HYPERSENSITIVITY
     Route: 048
     Dates: start: 2014
  57. ENOXAPARIN [Concomitant]
     Active Substance: ENOXAPARIN
     Indication: MEDIASTINAL MASS
     Route: 058
     Dates: start: 20160507, end: 20160507
  58. SODIUM CHLORIDE. [Concomitant]
     Active Substance: SODIUM CHLORIDE
     Indication: MEDIASTINAL MASS
     Dosage: CONTINUOUS
     Route: 042
     Dates: start: 20160507, end: 20160508
  59. SODIUM CHLORIDE. [Concomitant]
     Active Substance: SODIUM CHLORIDE
     Indication: SMALL CELL LUNG CANCER
  60. NICOTINE NICODERM CQ [Concomitant]
     Dosage: 21MG/24 HRS, PATCH
     Dates: start: 20160615
  61. CHANTIX [Concomitant]
     Active Substance: VARENICLINE TARTRATE
     Indication: SMOKING CESSATION THERAPY
     Route: 048
     Dates: start: 20160528

REACTIONS (4)
  - Hyponatraemia [Unknown]
  - Small cell lung cancer [Unknown]
  - Mediastinal mass [Unknown]
  - Hypotension [Unknown]

NARRATIVE: CASE EVENT DATE: 20160507
